FAERS Safety Report 8663599 (Version 2)
Quarter: 2012Q4

REPORT INFORMATION
  Report Type: 
  Country: FR (occurrence: FR)
  Receive Date: 20120713
  Receipt Date: 20120911
  Transmission Date: 20130627
  Serious: Yes (Other)
  Sender: FDA-Public Use
  Company Number: FR-009507513-2012SP036114

PATIENT

DRUGS (12)
  1. VICTRELIS [Suspect]
     Indication: HEPATITIS C
     Dosage: 800 mg, TID
     Dates: start: 20110517, end: 20110616
  2. VIRAFERONPEG [Suspect]
     Indication: HEPATITIS C
     Dosage: 0.45 ml, QW
     Dates: start: 20110425, end: 20111213
  3. REBETOL [Suspect]
     Dosage: 400 mg, BID
     Dates: start: 20110425, end: 20120103
  4. SPIRONOLACTONE/ FUROSEMIDE [Suspect]
     Indication: OEDEMA PERIPHERAL
     Dosage: 1 DF, QD
  5. SEROPLEX [Concomitant]
     Indication: PRODUCT USED FOR UNKNOWN INDICATION
     Dosage: 20 mg, QD
  6. XANAX [Concomitant]
     Indication: PRODUCT USED FOR UNKNOWN INDICATION
     Dosage: 0.25 mg, QD
  7. OMEPRAZOLE [Concomitant]
     Indication: ABDOMINAL PAIN UPPER
     Dosage: 20 mg, QD
  8. FUROSEMIDE [Concomitant]
     Indication: OEDEMA PERIPHERAL
     Dosage: 20 mg, QD
  9. HEMIGOXINE NATIVELLE [Concomitant]
     Indication: CARDIAC FAILURE
     Dosage: 0.125
  10. VITAMIN E [Concomitant]
     Indication: VITAMIN SUPPLEMENTATION
     Dosage: 500 mg, QD
  11. NEUPOGEN [Concomitant]
     Indication: NEUTROPENIA
     Dosage: 30000 / 15 DAYS
     Dates: start: 20110719, end: 20111213
  12. NEORECORMON [Concomitant]
     Indication: ANAEMIA
     Dosage: 60000
     Dates: start: 20111011, end: 20120113

REACTIONS (2)
  - Ascites [Recovering/Resolving]
  - General physical health deterioration [None]
